FAERS Safety Report 9396685 (Version 2)
Quarter: 2013Q3

REPORT INFORMATION
  Report Type: Spontaneous
  Country: US (occurrence: US)
  Receive Date: 20130712
  Receipt Date: 20130813
  Transmission Date: 20140515
  Serious: No
  Sender: FDA-Public Use
  Company Number: US-009507513-1307USA005186

PATIENT
  Sex: 0

DRUGS (1)
  1. COSOPT PF [Suspect]
     Dosage: UNK

REACTIONS (2)
  - Superficial injury of eye [Unknown]
  - Product quality issue [Unknown]
